FAERS Safety Report 7641180-4 (Version None)
Quarter: 2011Q3

REPORT INFORMATION
  Report Type: 
  Country: None (occurrence: None)
  Receive Date: 20110728
  Receipt Date: 20110715
  Transmission Date: 20111222
  Serious: Yes (Hospitalization, Other)
  Sender: FDA-Public Use
  Company Number: PHHY2011US64128

PATIENT
  Sex: Female
  Weight: 75 kg

DRUGS (6)
  1. ZONISAMIDE [Concomitant]
     Indication: MIGRAINE
     Dosage: UNK UKN, UNK
  2. REBIF [Suspect]
     Indication: MULTIPLE SCLEROSIS
     Dosage: 44 UG, TIW
     Route: 058
     Dates: start: 20100915, end: 20101001
  3. TEGRETOL-XR [Suspect]
     Indication: CONVULSION
     Dosage: THREE TIMES PER DAY
  4. VITAMIN D [Concomitant]
     Indication: VITAMIN D DEFICIENCY
     Dosage: 15000 DAILY
  5. TOPIRAMATE [Suspect]
     Indication: MIGRAINE
     Dosage: TWICE PER DAY
  6. CARDIZEM [Concomitant]
     Indication: MIGRAINE
     Dosage: 240 MG, DAILY

REACTIONS (2)
  - FALL [None]
  - MULTIPLE SCLEROSIS [None]
